FAERS Safety Report 4601641-9 (Version None)
Quarter: 2005Q1

REPORT INFORMATION
  Report Type: 
  Country: None (occurrence: None)
  Receive Date: 20050308
  Receipt Date: 20050224
  Transmission Date: 20050727
  Serious: Yes (Other)
  Sender: FDA-Public Use
  Company Number: 200500557

PATIENT
  Age: 66 Year
  Sex: Female

DRUGS (2)
  1. TAGAMET [Suspect]
     Dosage: 800MG PER DAY
     Route: 065
     Dates: start: 20031213
  2. UFT [Concomitant]
     Route: 065
     Dates: start: 20031213

REACTIONS (1)
  - DIABETES MELLITUS INSULIN-DEPENDENT [None]
